FAERS Safety Report 24166668 (Version 15)
Quarter: 2025Q4

REPORT INFORMATION
  Report Type: Spontaneous
  Country: GB (occurrence: GB)
  Receive Date: 20240802
  Receipt Date: 20251028
  Transmission Date: 20260118
  Serious: Yes (Hospitalization, Other)
  Sender: SANDOZ
  Company Number: GB-SANDOZ-SDZ2023GB053012

PATIENT
  Age: 54 Year
  Sex: Female
  Weight: 71 kg

DRUGS (304)
  1. ADALIMUMAB [Suspect]
     Active Substance: ADALIMUMAB
     Dosage: 98 MG
     Route: 058
  2. ADALIMUMAB [Suspect]
     Active Substance: ADALIMUMAB
     Dosage: 98 MG
     Route: 058
  3. ADALIMUMAB [Suspect]
     Active Substance: ADALIMUMAB
     Dosage: 98 MG
     Route: 058
  4. ADALIMUMAB [Suspect]
     Active Substance: ADALIMUMAB
     Dosage: 98 MG
     Route: 058
  5. ADALIMUMAB [Suspect]
     Active Substance: ADALIMUMAB
     Dosage: 98 MG
     Route: 065
  6. ADALIMUMAB [Suspect]
     Active Substance: ADALIMUMAB
     Dosage: 98 MG UNK (DOSAGE 2: UNIT=SURECLICK)
     Route: 058
  7. ADALIMUMAB [Suspect]
     Active Substance: ADALIMUMAB
     Dosage: 98 MG UNK (DOSAGE1: UNIT=SURECLICK) /  UNK DOSAGE 1: UNIT=NOT AVAILABLE/  (CUMULATIVE DOSE TO FIRST
     Route: 058
  8. ADALIMUMAB [Suspect]
     Active Substance: ADALIMUMAB
     Dosage: 98 MG(98 MG UNK (DOSAGE3: UNIT=SURECLICK)/ (CUMULATIVE DOSE TO FIRST REACTION: 98  MG)/UNK (DOSAGE 3
     Route: 058
  9. ADALIMUMAB [Suspect]
     Active Substance: ADALIMUMAB
     Dosage: 98 MILLIGRAM (DOSAGE6: UNIT=SURECLICK) /  98 MG / UNK (DOSAGE1: UNIT=NOT  AVAILABLE;) / 98 MILLIGRAM
     Route: 058
  10. ADALIMUMAB [Suspect]
     Active Substance: ADALIMUMAB
     Dosage: 98 MILLIGRAM/ 98 MG
     Route: 058
  11. ADALIMUMAB [Suspect]
     Active Substance: ADALIMUMAB
     Dosage: DOSAGE2: UNIT=SURECLICK
     Route: 058
  12. ADALIMUMAB [Suspect]
     Active Substance: ADALIMUMAB
     Dosage: DOSAGE3: UNIT=SURECLICK
     Route: 058
  13. ADALIMUMAB [Suspect]
     Active Substance: ADALIMUMAB
     Dosage: DOSAGE4: UNIT=SURECLICK
     Route: 058
  14. ADALIMUMAB [Suspect]
     Active Substance: ADALIMUMAB
     Dosage: UNK (DOSAGE 2: UNIT=SURECLICK
     Route: 058
  15. ADALIMUMAB [Suspect]
     Active Substance: ADALIMUMAB
     Dosage: UNK (DOSAGE TEXT: UNK 9 DOSAGE 1)
     Route: 058
  16. ADALIMUMAB [Suspect]
     Active Substance: ADALIMUMAB
     Dosage: UNK (DOSAGE TEXT: UNK 9 DOSAGE 1)/  UNK 9 (DOSAGE 1: UNIT=SURECLICK)/  (CUMULATIVE DOSE TO FIRST REA
     Route: 058
  17. ADALIMUMAB [Suspect]
     Active Substance: ADALIMUMAB
     Dosage: UNK (DOSAGE TEXT: UNK 9 DOSAGE 1)/ UNK 9 (DOSAGE 1: UNIT=SURECLICK)/ (CUMULATIVE DOSE TO FIRST REACT
     Route: 058
  18. ADALIMUMAB [Suspect]
     Active Substance: ADALIMUMAB
     Dosage: UNK (DOSAGE1: UNIT=NOT AVAILABLE;)
     Route: 058
  19. ADALIMUMAB [Suspect]
     Active Substance: ADALIMUMAB
     Dosage: UNK (DOSAGE4: UNIT=SURECLICK)/  (CUMULATIVE DOSE TO FIRST REACTION: 98  MG)/UNK, UNK (DOSAGE 4)/DOSA
     Route: 058
  20. ADALIMUMAB [Suspect]
     Active Substance: ADALIMUMAB
     Dosage: UNK (UNK (DOSAGE TEXT: UNK 9 DOSAGE 1))
     Route: 058
  21. ADALIMUMAB [Suspect]
     Active Substance: ADALIMUMAB
     Dosage: UNK (UNK (DOSAGE TEXT: UNK 9 DOSAGE 1))
     Route: 058
  22. ADALIMUMAB [Suspect]
     Active Substance: ADALIMUMAB
     Dosage: UNK, DOSAGE 1
     Route: 058
  23. ADALIMUMAB [Suspect]
     Active Substance: ADALIMUMAB
     Dosage: UNK, DOSAGE 2
     Route: 058
  24. ADALIMUMAB [Suspect]
     Active Substance: ADALIMUMAB
     Dosage: UNK, DOSAGE 4
     Route: 058
  25. ADALIMUMAB [Suspect]
     Active Substance: ADALIMUMAB
     Dosage: UNKUNK (UNK, DOSAGE 1)
     Route: 058
  26. ADALIMUMAB [Suspect]
     Active Substance: ADALIMUMAB
     Dosage: UNKUNK 9DOSAGE1: UNIT=SURECLICK
     Route: 058
  27. ADALIMUMAB [Suspect]
     Active Substance: ADALIMUMAB
     Dosage: UNKUNK UNK, DOSAGE 3
     Route: 058
  28. ADALIMUMAB [Suspect]
     Active Substance: ADALIMUMAB
     Dosage: UNKUNK, DOSAGE 9
     Route: 058
  29. ADALIMUMAB [Suspect]
     Active Substance: ADALIMUMAB
     Dosage: UNKUNK, DOSAGE 9
     Route: 058
  30. ADALIMUMAB [Suspect]
     Active Substance: ADALIMUMAB
     Dosage: UNK (DOSAGE TEXT: UNK 9 DOSAGE 1)/  UNK 9 (DOSAGE 1: UNIT=SURECLICK)/  (CUMULATIVE DOSE TO FIRST REA
     Route: 065
  31. ADALIMUMAB [Suspect]
     Active Substance: ADALIMUMAB
     Indication: Product used for unknown indication
     Dosage: UNK (DOSAGE1: UNIT=NOT AVAILABLE;)
     Route: 065
  32. ADALIMUMAB [Suspect]
     Active Substance: ADALIMUMAB
     Indication: Product used for unknown indication
     Dosage: UNK (DOSAGE1: UNIT=NOT AVAILABLE;)
     Route: 065
  33. ADALIMUMAB [Suspect]
     Active Substance: ADALIMUMAB
     Dosage: UNK (DOSAGE1: UNIT=NOT AVAILABLE;) /  UNK (DOSAGE TEXT: UNK 9 DOSAGE 1)
     Route: 065
  34. ADALIMUMAB [Suspect]
     Active Substance: ADALIMUMAB
     Dosage: UNK (DOSAGE1: UNIT=NOT AVAILABLE;) / UNK (DOSAGE TEXT: UNK 9 DOSAGE 1)
     Route: 065
  35. ADALIMUMAB [Suspect]
     Active Substance: ADALIMUMAB
     Dosage: UNK (UNK, DOSAGE 1)
     Route: 065
  36. ADALIMUMAB [Suspect]
     Active Substance: ADALIMUMAB
     Dosage: UNK (UNK, DOSAGE 2)
     Route: 065
  37. ADALIMUMAB [Suspect]
     Active Substance: ADALIMUMAB
     Dosage: UNK UNK, DOSAGE 3
     Route: 065
  38. ADALIMUMAB [Suspect]
     Active Substance: ADALIMUMAB
     Dosage: UNK, DOSAGE 2
     Route: 058
  39. ADALIMUMAB [Suspect]
     Active Substance: ADALIMUMAB
     Dosage: UNK, DOSAGE 4
     Route: 065
  40. ADALIMUMAB [Suspect]
     Active Substance: ADALIMUMAB
     Dosage: UNK, DOSAGE 9
     Route: 065
  41. HUMIRA [Suspect]
     Active Substance: ADALIMUMAB
     Dosage: 98 UNK
     Route: 059
  42. HUMIRA [Suspect]
     Active Substance: ADALIMUMAB
     Dosage: 98 MG
     Route: 059
  43. HUMIRA [Suspect]
     Active Substance: ADALIMUMAB
     Dosage: 98 MG
     Route: 059
  44. HUMIRA [Suspect]
     Active Substance: ADALIMUMAB
     Dosage: 98 MG
     Route: 059
  45. HUMIRA [Suspect]
     Active Substance: ADALIMUMAB
     Dosage: 98 MG
     Route: 059
  46. HUMIRA [Suspect]
     Active Substance: ADALIMUMAB
     Dosage: 98 MG ((DOSAGE TEXT: UNK 9 DOSAGE 1)/ UNK 9 (DOSAGE 1: UNIT=SURECLICK)/ (CUMULATIVE DOSE TO FIRST RE
     Route: 059
  47. HUMIRA [Suspect]
     Active Substance: ADALIMUMAB
     Dosage: 98 MG (98 MILLIGRAM, UNK (DOSAGE 3)
     Route: 059
  48. HUMIRA [Suspect]
     Active Substance: ADALIMUMAB
     Dosage: 98 MG (98 MILLIGRAM, UNK (DOSAGE 3: UNIT=SURECLICK)/ADDITIONAL INFORMATION ON DRUG DOSAGE1: UNIT=NOT
     Route: 059
  49. HUMIRA [Suspect]
     Active Substance: ADALIMUMAB
     Dosage: 98 MG (98 MILLIGRAM, UNK, 9 (DOSAGE 1: UNIT=SURECLICK)/~ADDITIONAL INFORMATION ON DRUG DOSAGE1: UNIT
     Route: 059
  50. HUMIRA [Suspect]
     Active Substance: ADALIMUMAB
     Dosage: 98 MG (98 MILLIGRAM, UNK (DOSAGE 2: UNIT=SURECLICK) /ADDITIONAL INFORMATION ON DRUG DOSAGE1: UNIT=NO
     Route: 059
  51. HUMIRA [Suspect]
     Active Substance: ADALIMUMAB
     Dosage: 98 MG (98MG (DOSAGE 4: UNIT=SURECLICK)/ADDITIONAL INFORMATION ON DRUG DOSAGE1: UNIT=NOT AVAILABLE DO
     Route: 059
  52. HUMIRA [Suspect]
     Active Substance: ADALIMUMAB
     Dosage: 98 MG (98MG, DOSAGE 1: UNIT=NOT AVAILABLE/ADDITIONAL INFORMATION ON DRUG DOSAGE1: UNIT=NOT AVAILABLE
     Route: 059
  53. HUMIRA [Suspect]
     Active Substance: ADALIMUMAB
     Dosage: 98 MG (ADDITIONAL INFORMATION: {CNAPPROVALNUMBER_NGX}NOT APPLICABLE{/CNAPPROVALNUMBER_NGX})
     Route: 059
  54. HUMIRA [Suspect]
     Active Substance: ADALIMUMAB
     Dosage: 98 MG (ADDITIONAL INFORMATION: {CNAPPROVALNUMBER_NGX}NOT APPLICABLE{/CNAPPROVALNUMBER_NGX})
     Route: 059
  55. HUMIRA [Suspect]
     Active Substance: ADALIMUMAB
     Dosage: 98 MG (DOSAGE TEXT: 98 MG(98 MG UNK (DOSAGE3: UNIT=SURECLICK)/ (CUMULATIVE DOSE TO FIRST REACTION: 9
     Route: 059
  56. HUMIRA [Suspect]
     Active Substance: ADALIMUMAB
     Dosage: 98 MG (DOSAGE TEXT: 98 MG(98 MG UNK (DOSAGE3: UNIT=SURECLICK)/ (CUMULATIVE DOSE TO FIRST REACTION: 9
     Route: 059
  57. HUMIRA [Suspect]
     Active Substance: ADALIMUMAB
     Dosage: 98 MG (DOSAGE TEXT: 98 MILLIGRAM (DOSAGE6: UNIT=SURECLICK) / 98 MG / UNK (DOSAGE1: UNIT=NOT AVAILABL
     Route: 059
  58. HUMIRA [Suspect]
     Active Substance: ADALIMUMAB
     Dosage: 98 MG (UNK (DOSAGE TEXT: UNK 9 DOSAGE 1)/ UNK 9 (DOSAGE 1: UNIT=SURECLICK)/ (CUMULATIVE DOSE TO FIRS
     Route: 059
  59. HUMIRA [Suspect]
     Active Substance: ADALIMUMAB
     Dosage: 98 MG (UNK (DOSAGE TEXT: UNK 9 DOSAGE 1)/ UNK 9 (DOSAGE 1: UNIT=SURECLICK)/ (CUMULATIVE DOSE TO FIRS
     Route: 059
  60. HUMIRA [Suspect]
     Active Substance: ADALIMUMAB
     Dosage: 98 MG (UNKUNK 9DOSAGE1: UNIT=SURECLICK)
     Route: 059
  61. HUMIRA [Suspect]
     Active Substance: ADALIMUMAB
     Dosage: 98 MG UNK (DOSAGE 2: UNIT=SURECLICK)
     Route: 059
  62. HUMIRA [Suspect]
     Active Substance: ADALIMUMAB
     Dosage: 98 MG UNK (DOSAGE 2: UNIT=SURECLICK)
     Route: 059
  63. HUMIRA [Suspect]
     Active Substance: ADALIMUMAB
     Dosage: 98 MG UNK (DOSAGE TEXT: UNK 9 DOSAGE 1)
     Route: 059
  64. HUMIRA [Suspect]
     Active Substance: ADALIMUMAB
     Indication: Product used for unknown indication
     Dosage: 98 MG UNK (DOSAGE1: UNIT=SURECLICK) / UNK DOSAGE 1: UNIT=NOT AVAILABLE/ (CUMULATIVE DOSE TO FIRST RE
     Route: 059
  65. HUMIRA [Suspect]
     Active Substance: ADALIMUMAB
     Dosage: 98 MG UNK (DOSAGE1: UNIT=SURECLICK) / UNK DOSAGE 1: UNIT=NOT AVAILABLE/ (CUMULATIVE DOSE TO FIRST RE
     Route: 059
  66. HUMIRA [Suspect]
     Active Substance: ADALIMUMAB
     Dosage: 98 MG UNK (DOSAGE1: UNIT=SURECLICK) / UNK DOSAGE 1: UNIT=NOT AVAILABLE/ (CUMULATIVE DOSE TO FIRST RE
     Route: 059
  67. HUMIRA [Suspect]
     Active Substance: ADALIMUMAB
     Dosage: 98 MG UNK (DOSAGE3: UNIT=SURECLICK)/(CUMULATIVE DOSE TO FIRST REACTION: 98 MG)/UNK (DOSAGE 3) /DOSAG
     Route: 059
  68. HUMIRA [Suspect]
     Active Substance: ADALIMUMAB
     Dosage: 98 MG UNK (DOSAGE4: UNIT=SURECLICK)/ (CUMULATIVE DOSE TO FIRST REACTION: 98 MG)/UNK, UNK (DOSAGE 4)/
     Route: 059
  69. HUMIRA [Suspect]
     Active Substance: ADALIMUMAB
     Dosage: 98 MG(98 MG UNK (DOSAGE3: UNIT=SURECLICK)/ (CUMULATIVE DOSE TO FIRST REACTION: 98 MG)/UNK (DOSAGE 3)
     Route: 059
  70. HUMIRA [Suspect]
     Active Substance: ADALIMUMAB
     Dosage: 98 MG, (98 MILLIGRAM, UNK) / DOSAGE1: UNIT=NOT AVAILABLE
     Route: 059
  71. HUMIRA [Suspect]
     Active Substance: ADALIMUMAB
     Dosage: 98 MG, (98 MILLIGRAM, UNK) / DOSAGE1: UNIT=NOT AVAILABLE
     Route: 059
  72. HUMIRA [Suspect]
     Active Substance: ADALIMUMAB
     Dosage: 98 MG, (98 MILLIGRAM, UNK) / DOSAGE1: UNIT=NOT AVAILABLE
     Route: 059
  73. HUMIRA [Suspect]
     Active Substance: ADALIMUMAB
     Dosage: 98 MG, (UNKUNK (UNK, DOSAGE 2)
     Route: 059
  74. HUMIRA [Suspect]
     Active Substance: ADALIMUMAB
     Dosage: 98 MG, DOSAGE2: UNIT=SURECLICK
     Route: 059
  75. HUMIRA [Suspect]
     Active Substance: ADALIMUMAB
     Dosage: 98 MG, DOSAGE3: UNIT=SURECLICK
     Route: 059
  76. HUMIRA [Suspect]
     Active Substance: ADALIMUMAB
     Dosage: 98 MG, UNK, DOSAGE 1
     Route: 059
  77. HUMIRA [Suspect]
     Active Substance: ADALIMUMAB
     Dosage: 98 MG, UNKUNK (UNK, DOSAGE 2) (ADDITIONAL INFORMATION: {CNAPPROVALNUMBER_NGX}NOT APPLICABLE{/CNAPPRO
     Route: 059
  78. HUMIRA [Suspect]
     Active Substance: ADALIMUMAB
     Dosage: 98 MILLIGRAM (ADDITIONAL INFORMATION: {CNAPPROVALNUMBER_NGX}NOT APPLICABLE{/CNAPPROVALNUMBER_NGX})
     Route: 059
  79. HUMIRA [Suspect]
     Active Substance: ADALIMUMAB
     Dosage: 98 MILLIGRAM (DOSAGE6: UNIT=SURECLICK) / 98 MG / UNK (DOSAGE1: UNIT=NOT AVAILABLE;) / 98 MILLIGRAMS
     Route: 059
  80. HUMIRA [Suspect]
     Active Substance: ADALIMUMAB
     Dosage: 98 MILLIGRAM, UNK (DOSAGE 3: UNIT=SURECLICK)
     Route: 059
  81. HUMIRA [Suspect]
     Active Substance: ADALIMUMAB
     Dosage: 98 MILLIGRAM, UNK (DOSAGE 3: UNIT=SURECLICK)
     Route: 059
  82. HUMIRA [Suspect]
     Active Substance: ADALIMUMAB
     Indication: Product used for unknown indication
     Dosage: 98 MILLIGRAM, UNK, 9 (DOSAGE 1: UNIT=SURECLICK)
     Route: 059
  83. HUMIRA [Suspect]
     Active Substance: ADALIMUMAB
     Dosage: 98 MILLIGRAM, UNK
     Route: 059
  84. HUMIRA [Suspect]
     Active Substance: ADALIMUMAB
     Dosage: 98 MILLIGRAM, UNK
     Route: 059
  85. HUMIRA [Suspect]
     Active Substance: ADALIMUMAB
     Dosage: 98 MILLIGRAM, UNK
     Route: 059
  86. HUMIRA [Suspect]
     Active Substance: ADALIMUMAB
     Dosage: 98 MILLIGRAM, UNK
     Route: 059
  87. HUMIRA [Suspect]
     Active Substance: ADALIMUMAB
     Dosage: 98 MILLIGRAM, UNK
     Route: 059
  88. HUMIRA [Suspect]
     Active Substance: ADALIMUMAB
     Dosage: 98 MILLIGRAM, UNK (DOSAGE 2: UNIT=SURECLICK)
     Route: 059
  89. HUMIRA [Suspect]
     Active Substance: ADALIMUMAB
     Dosage: 98 MILLIGRAM/ 98 MG
     Route: 059
  90. HUMIRA [Suspect]
     Active Substance: ADALIMUMAB
     Dosage: 98 MILLIGRAM/ 98 MG / DOSAGE1: UNIT=SURECLICK DOSAGE2: UNIT=SURECLICK DOSAGE3: UNIT=SURECLICK DOSAGE
     Route: 059
  91. HUMIRA [Suspect]
     Active Substance: ADALIMUMAB
     Dosage: 98MG (DOSAGE 4: UNIT=SURECLICK)
     Route: 059
  92. HUMIRA [Suspect]
     Active Substance: ADALIMUMAB
     Dosage: 98MG (DOSAGE TEXT: UNK 9 DOSAGE 1)
     Route: 059
  93. HUMIRA [Suspect]
     Active Substance: ADALIMUMAB
     Dosage: 98MG, DOSAGE 1: UNIT=NOT AVAILABLE
     Route: 059
  94. HUMIRA [Suspect]
     Active Substance: ADALIMUMAB
     Dosage: DOSAGE2: UNIT=SURECLICK
     Route: 059
  95. HUMIRA [Suspect]
     Active Substance: ADALIMUMAB
     Dosage: DOSAGE4: UNIT=SURECLICK
     Route: 059
  96. HUMIRA [Suspect]
     Active Substance: ADALIMUMAB
     Dosage: UNK (DOSAGE 2: UNIT=SURECLICK)
     Route: 059
  97. HUMIRA [Suspect]
     Active Substance: ADALIMUMAB
     Dosage: UNK (DOSAGE 2: UNIT=SURECLICK) (ADDITIONAL INFORMATION: {CNAPPROVALNUMBER_NGX}NOT APPLICABLE{/CNAPPR
     Route: 059
  98. HUMIRA [Suspect]
     Active Substance: ADALIMUMAB
     Dosage: UNK (DOSAGE 3: UNIT=SURECLICK) (ADDITIONAL INFORMATION: {CNAPPROVALNUMBER_NGX}NOT APPLICABLE{/CNAPPR
     Route: 059
  99. HUMIRA [Suspect]
     Active Substance: ADALIMUMAB
     Dosage: UNK (DOSAGE 4: UNIT=SURECLICK) (ADDITIONAL INFORMATION: {CNAPPROVALNUMBER_NGX}NOT APPLICABLE{/CNAPPR
     Route: 059
  100. HUMIRA [Suspect]
     Active Substance: ADALIMUMAB
     Dosage: UNK (DOSAGE TEXT: UNK 9 DOSAGE 1)/ UNK 9 (DOSAGE 1: UNIT=SURECLICK)/ (CUMULATIVE DOSE TO FIRST REACT
     Route: 059
  101. HUMIRA [Suspect]
     Active Substance: ADALIMUMAB
     Dosage: UNK (UNK (DOSAGE TEXT: UNK 9 DOSAGE 1))
     Route: 059
  102. HUMIRA [Suspect]
     Active Substance: ADALIMUMAB
     Dosage: UNK (UNK (DOSAGE TEXT: UNK 9 DOSAGE 1))
     Route: 059
  103. HUMIRA [Suspect]
     Active Substance: ADALIMUMAB
     Dosage: UNK, 9 (DOSAGE 1: UNIT=SURECLICK) (ADDITIONAL INFORMATION: {CNAPPROVALNUMBER_NGX}NOT APPLICABLE{/CNA
     Route: 059
  104. HUMIRA [Suspect]
     Active Substance: ADALIMUMAB
     Dosage: UNK, DOSAGE 1: UNIT=NOT AVAILABLE
     Route: 059
  105. HUMIRA [Suspect]
     Active Substance: ADALIMUMAB
     Dosage: UNK, DOSAGE 1: UNIT=NOT AVAILABLE (ADDITIONAL INFORMATION: {CNAPPROVALNUMBER_NGX}NOT APPLICABLE{/CNA
     Route: 059
  106. HUMIRA [Suspect]
     Active Substance: ADALIMUMAB
     Dosage: UNK, DOSAGE 4
     Route: 059
  107. HUMIRA [Suspect]
     Active Substance: ADALIMUMAB
     Dosage: UNK, DOSAGE 4 (ADDITIONAL INFORMATION: {CNAPPROVALNUMBER_NGX}NOT APPLICABLE{/CNAPPROVALNUMBER_NGX})
     Route: 059
  108. HUMIRA [Suspect]
     Active Substance: ADALIMUMAB
     Dosage: UNK, DOSAGE 9 (ADDITIONAL INFORMATION: {CNAPPROVALNUMBER_NGX}NOT APPLICABLE{/CNAPPROVALNUMBER_NGX})
     Route: 059
  109. HUMIRA [Suspect]
     Active Substance: ADALIMUMAB
     Dosage: UNKUNK (UNK, DOSAGE 1) (ADDITIONAL INFORMATION: {CNAPPROVALNUMBER_NGX}NOT APPLICABLE{/CNAPPROVALNUMB
     Route: 059
  110. HUMIRA [Suspect]
     Active Substance: ADALIMUMAB
     Dosage: UNKUNK 9DOSAGE1: UNIT=SURECLICK
     Route: 059
  111. HUMIRA [Suspect]
     Active Substance: ADALIMUMAB
     Dosage: UNKUNK, DOSAGE 9 (ADDITIONAL INFORMATION: {CNAPPROVALNUMBER_NGX}NOT APPLICABLE{/CNAPPROVALNUMBER_NGX
     Route: 059
  112. HUMIRA [Suspect]
     Active Substance: ADALIMUMAB
     Dosage: 98 MG, UNK (DOSAGE TEXT: UNK 9 DOSAGE 1)/ UNK 9 (DOSAGE 1: UNIT=SURECLICK)/ (CUMULATIVE DOSE
     Route: 059
  113. HUMIRA [Suspect]
     Active Substance: ADALIMUMAB
     Dosage: DOSAGE 1: UNIT=NOT AVAILABLE / DOSAGE1: UNIT=SURECLICK DOSAGE2: UNIT=SURECLICK DOSAGE3: UNIT=SURECLI
     Route: 059
  114. HUMIRA [Suspect]
     Active Substance: ADALIMUMAB
     Dosage: DOSAGE4: UNIT=SURECLICK
     Route: 059
  115. HUMIRA [Suspect]
     Active Substance: ADALIMUMAB
     Dosage: UNK (9, DOSAGE 1: UNIT=SURECLICK)
     Route: 059
  116. HUMIRA [Suspect]
     Active Substance: ADALIMUMAB
     Dosage: UNK (9, DOSAGE 1: UNIT=SURECLICK) / {CNAPPROVALNUMBER_NGX}NOT APPLICABLE{/CNAPPROVALNUMBER_NGX}
     Route: 059
  117. HUMIRA [Suspect]
     Active Substance: ADALIMUMAB
     Dosage: UNK (DOSAGE 1: UNIT=NOT AVAILABLE)
     Route: 059
  118. HUMIRA [Suspect]
     Active Substance: ADALIMUMAB
     Dosage: UNK (DOSAGE 2: UNIT=SURECLICK) / {CNAPPROVALNUMBER_NGX}NOT APPLICABLE{/CNAPPROVALNUMBER_NGX}
     Route: 059
  119. HUMIRA [Suspect]
     Active Substance: ADALIMUMAB
     Dosage: UNK (DOSAGE 3: UNIT=SURECLICK) / {CNAPPROVALNUMBER_NGX}NOT APPLICABLE{/CNAPPROVALNUMBER_NGX}
     Route: 059
  120. HUMIRA [Suspect]
     Active Substance: ADALIMUMAB
     Dosage: UNK (DOSAGE TEXT: UNK 9 DOSAGE 1)/ UNK 9 (DOSAGE 1: UNIT=SURECLICK)
     Route: 059
  121. HUMIRA [Suspect]
     Active Substance: ADALIMUMAB
     Dosage: UNK (DOSAGE TEXT: UNK 9 DOSAGE 1)/ UNK 9 (DOSAGE 1: UNIT=SURECLICK)
     Route: 059
  122. HUMIRA [Suspect]
     Active Substance: ADALIMUMAB
     Dosage: UNK (DOSAGE TEXT: UNK 9 DOSAGE 1)/ UNK 9 (DOSAGE 1: UNIT=SURECLICK)/ (CUMULATIVE DOSE
     Route: 059
  123. HUMIRA [Suspect]
     Active Substance: ADALIMUMAB
     Indication: Product used for unknown indication
     Dosage: UNK (DOSAGE TEXT: UNK 9 DOSAGE 1)/ UNK 9 (DOSAGE 1: UNIT=SURECLICK)/ (CUMULATIVE DOSE TO FIRST REACT
     Route: 059
  124. HUMIRA [Suspect]
     Active Substance: ADALIMUMAB
     Dosage: UNK (DOSAGE TEXT: UNK 9 DOSAGE 1)/ UNK 9 (DOSAGE 1: UNIT=SURECLICK)/ (CUMULATIVE DOSE TO FIRST REACT
     Route: 059
  125. HUMIRA [Suspect]
     Active Substance: ADALIMUMAB
     Dosage: UNK (DOSAGE TEXT: UNK 9 DOSAGE 1)/ UNK 9 (DOSAGE 1: UNIT=SURECLICK)/ (CUMULATIVE DOSE TO FIRST REACT
     Route: 059
  126. HUMIRA [Suspect]
     Active Substance: ADALIMUMAB
     Dosage: UNK (DOSAGE TEXT: UNK 9 DOSAGE 1)/ UNK 9 (DOSAGE 1: UNIT=SURECLICK)/ (CUMULATIVE DOSE TO FIRST REACT
     Route: 059
  127. HUMIRA [Suspect]
     Active Substance: ADALIMUMAB
     Dosage: UNK (DOSAGE TEXT: UNK 9 DOSAGE 1)/ UNK 9 (DOSAGE 1: UNIT=SURECLICK)/ (CUMULATIVE DOSE TO FIRST REACT
     Route: 059
  128. HUMIRA [Suspect]
     Active Substance: ADALIMUMAB
     Dosage: UNK (DOSAGE TEXT: UNK 9 DOSAGE 1)/ UNK 9 (DOSAGE 1: UNIT=SURECLICK)/ (CUMULATIVE DOSE TO FIRST REACT
     Route: 059
  129. HUMIRA [Suspect]
     Active Substance: ADALIMUMAB
     Dosage: UNK (DOSAGE TEXT: UNK 9 DOSAGE 1)/ UNK 9 (DOSAGE 1: UNIT=SURECLICK)/ (CUMULATIVE DOSE TO FIRST REACT
     Route: 059
  130. HUMIRA [Suspect]
     Active Substance: ADALIMUMAB
     Dosage: UNK (DOSAGE TEXT: UNK 9 DOSAGE 1)/ UNK 9 (DOSAGE 1: UNIT=SURECLICK)/ (CUMULATIVE DOSE TO FIRST REACT
     Route: 059
  131. HUMIRA [Suspect]
     Active Substance: ADALIMUMAB
     Dosage: UNK (DOSAGE TEXT: UNK 9 DOSAGE 1)/ UNK 9 (DOSAGE 1: UNIT=SURECLICK)/ (CUMULATIVE DOSE TO FIRST REACT
     Route: 059
  132. HUMIRA [Suspect]
     Active Substance: ADALIMUMAB
     Dosage: UNK (DOSAGE1: UNIT=NOT AVAILABLE)
     Route: 059
  133. HUMIRA [Suspect]
     Active Substance: ADALIMUMAB
     Dosage: UNK (DOSAGE1: UNIT=NOT AVAILABLE;)
     Route: 059
  134. HUMIRA [Suspect]
     Active Substance: ADALIMUMAB
     Dosage: UNK (DOSAGE1: UNIT=NOT AVAILABLE;)
     Route: 059
  135. HUMIRA [Suspect]
     Active Substance: ADALIMUMAB
     Dosage: UNK (DOSAGE1: UNIT=NOT AVAILABLE;) / UNK (DOSAGE TEXT: UNK 9 DOSAGE 1)
     Route: 059
  136. HUMIRA [Suspect]
     Active Substance: ADALIMUMAB
     Dosage: UNK (DOSAGE1: UNIT=NOT AVAILABLE;) / UNK (DOSAGE TEXT: UNK 9 DOSAGE 1)
     Route: 059
  137. HUMIRA [Suspect]
     Active Substance: ADALIMUMAB
     Dosage: UNK (DOSAGE1: UNIT=NOT AVAILABLE;) / UNK (DOSAGE TEXT: UNK 9 DOSAGE 1)
     Route: 059
  138. HUMIRA [Suspect]
     Active Substance: ADALIMUMAB
     Dosage: UNK (DOSAGE1: UNIT=NOT AVAILABLE;) / UNK (DOSAGE TEXT: UNK 9 DOSAGE 1)
     Route: 065
  139. HUMIRA [Suspect]
     Active Substance: ADALIMUMAB
     Dosage: UNK (DOSAGE1: UNIT=NOT AVAILABLE;)/DOSAGE1: UNIT=SURECLICK
     Route: 059
  140. HUMIRA [Suspect]
     Active Substance: ADALIMUMAB
     Dosage: UNK (DOSAGE1: UNIT=NOT AVAILABLE;)/DOSAGE1: UNIT=SURECLICK
     Route: 059
  141. HUMIRA [Suspect]
     Active Substance: ADALIMUMAB
     Dosage: UNK (DOSAGE1: UNIT=NOT AVAILABLE;);
     Route: 059
  142. HUMIRA [Suspect]
     Active Substance: ADALIMUMAB
     Dosage: UNK (DOSAGE4: UNIT=SURECLICK)/ (CUMULATIVE DOSE TO FIRST REACTION: 98 MG)/UNK, UNK (DOSAGE 4)/DOSAGE
     Route: 059
  143. HUMIRA [Suspect]
     Active Substance: ADALIMUMAB
     Dosage: UNK (DOSAGE4: UNIT=SURECLICK)/ (CUMULATIVE DOSE TO FIRST REACTION: 98 MG)/UNK, UNK (DOSAGE 4)/DOSAGE
     Route: 059
  144. HUMIRA [Suspect]
     Active Substance: ADALIMUMAB
     Dosage: UNK (UNK (DOSAGE 1: UNIT=NOT AVAILABLE)) / {CNAPPROVALNUMBER_NGX}NOT APPLICABLE{/CNAPPROVALNUMBER_NG
     Route: 059
  145. HUMIRA [Suspect]
     Active Substance: ADALIMUMAB
     Dosage: UNK (UNK (DOSAGE TEXT: UNK 9 DOSAGE 1)) (ADDITIONAL INFORMATION: {CNAPPROVALNUMBER_NGX}NOT APPLICABL
     Route: 059
  146. HUMIRA [Suspect]
     Active Substance: ADALIMUMAB
     Dosage: UNK (UNK, DOSAGE 1)
     Route: 059
  147. HUMIRA [Suspect]
     Active Substance: ADALIMUMAB
     Dosage: UNK (UNK, DOSAGE 2)
     Route: 059
  148. HUMIRA [Suspect]
     Active Substance: ADALIMUMAB
     Dosage: UNK (UNK, DOSAGE 2)
     Route: 059
  149. HUMIRA [Suspect]
     Active Substance: ADALIMUMAB
     Dosage: UNK (UNK, DOSAGE 3)
     Route: 059
  150. HUMIRA [Suspect]
     Active Substance: ADALIMUMAB
     Dosage: UNK (UNK, DOSAGE 3)
     Route: 059
  151. HUMIRA [Suspect]
     Active Substance: ADALIMUMAB
     Dosage: UNK DOSAGE 4 (ADDITIONAL INFORMATION: {CNAPPROVALNUMBER_NGX}NOT APPLICABLE{/CNAPPROVALNUMBER_NGX})
     Route: 059
  152. HUMIRA [Suspect]
     Active Substance: ADALIMUMAB
     Dosage: UNK UNK, DOSAGE 3
     Route: 059
  153. HUMIRA [Suspect]
     Active Substance: ADALIMUMAB
     Dosage: UNK, 9 (DOSAGE 1: UNIT=SURECLICK)
     Route: 059
  154. HUMIRA [Suspect]
     Active Substance: ADALIMUMAB
     Dosage: UNK, DOSAGE 1
     Route: 059
  155. HUMIRA [Suspect]
     Active Substance: ADALIMUMAB
     Dosage: UNK, DOSAGE 1
     Route: 059
  156. HUMIRA [Suspect]
     Active Substance: ADALIMUMAB
     Dosage: UNK, DOSAGE 1: UNIT=NOT AVAILABLE
     Route: 059
  157. HUMIRA [Suspect]
     Active Substance: ADALIMUMAB
     Dosage: UNK, DOSAGE 1: UNIT=NOT AVAILABLE
     Route: 059
  158. HUMIRA [Suspect]
     Active Substance: ADALIMUMAB
     Dosage: UNK, DOSAGE 2
     Route: 059
  159. HUMIRA [Suspect]
     Active Substance: ADALIMUMAB
     Dosage: UNK, DOSAGE 2
     Route: 059
  160. HUMIRA [Suspect]
     Active Substance: ADALIMUMAB
     Dosage: UNK, DOSAGE 2
     Route: 059
  161. HUMIRA [Suspect]
     Active Substance: ADALIMUMAB
     Dosage: UNK, DOSAGE 3
     Route: 059
  162. HUMIRA [Suspect]
     Active Substance: ADALIMUMAB
     Dosage: UNK, DOSAGE 3
     Route: 059
  163. HUMIRA [Suspect]
     Active Substance: ADALIMUMAB
     Dosage: UNK, DOSAGE 4
     Route: 059
  164. HUMIRA [Suspect]
     Active Substance: ADALIMUMAB
     Dosage: UNK, DOSAGE 4
     Route: 059
  165. HUMIRA [Suspect]
     Active Substance: ADALIMUMAB
     Dosage: UNK, DOSAGE 4
     Route: 059
  166. HUMIRA [Suspect]
     Active Substance: ADALIMUMAB
     Dosage: UNK, DOSAGE 4
     Route: 059
  167. HUMIRA [Suspect]
     Active Substance: ADALIMUMAB
     Dosage: UNK, DOSAGE 4
     Route: 059
  168. HUMIRA [Suspect]
     Active Substance: ADALIMUMAB
     Dosage: UNK, DOSAGE 9
     Route: 059
  169. HUMIRA [Suspect]
     Active Substance: ADALIMUMAB
     Dosage: UNK, DOSAGE 9
     Route: 059
  170. HUMIRA [Suspect]
     Active Substance: ADALIMUMAB
     Dosage: UNK, DOSAGE 9
     Route: 059
  171. HUMIRA [Suspect]
     Active Substance: ADALIMUMAB
     Dosage: UNK, DOSAGE 9
     Route: 059
  172. HUMIRA [Suspect]
     Active Substance: ADALIMUMAB
     Dosage: UNK, DOSAGE 9
     Route: 059
  173. HUMIRA [Suspect]
     Active Substance: ADALIMUMAB
     Dosage: UNK, DOSAGE 9
     Route: 059
  174. HUMIRA [Suspect]
     Active Substance: ADALIMUMAB
     Dosage: UNK, UNK (DOSAGE 2: UNIT=SURECLICK) / DOSAGE1: UNIT=SURECLICK DOSAGE2: UNIT=SURECLICK DOSAGE3: UNIT=
     Route: 059
  175. HUMIRA [Suspect]
     Active Substance: ADALIMUMAB
     Dosage: UNK, UNK (DOSAGE 4: UNIT=SURECLICK) / DOSAGE1: UNIT=SURECLICK DOSAGE2: UNIT=SURECLICK DOSAGE3: UNIT=
     Route: 059
  176. HUMIRA [Suspect]
     Active Substance: ADALIMUMAB
     Dosage: UNKUNK (UNK, DOSAGE 1)
     Route: 059
  177. HUMIRA [Suspect]
     Active Substance: ADALIMUMAB
     Dosage: UNKUNK (UNK, DOSAGE 1)
     Route: 059
  178. HUMIRA [Suspect]
     Active Substance: ADALIMUMAB
     Dosage: UNKUNK UNK, DOSAGE 3 (ADDITIONAL INFORMATION: {CNAPPROVALNUMBER_NGX}NOT APPLICABLE{/CNAPPROVALNUMBER
     Route: 059
  179. HUMIRA [Suspect]
     Active Substance: ADALIMUMAB
     Dosage: UNKUNK, DOSAGE 9
     Route: 059
  180. LETROZOLE [Suspect]
     Active Substance: LETROZOLE
     Dosage: 2.5 MG, QD (DAILY)
     Route: 048
     Dates: start: 20240221, end: 20240430
  181. LETROZOLE [Suspect]
     Active Substance: LETROZOLE
     Indication: Breast cancer female
     Dosage: 2.5 MILLIGRAM, QD (2.5 MG, DAILY)
     Route: 048
     Dates: start: 20240221, end: 20240430
  182. LETROZOLE [Suspect]
     Active Substance: LETROZOLE
     Dosage: 2.5 MILLIGRAM, QD/ 2.5 MG, QD (2.5 MG,  DAILY)/ (DOSAGE1: UNIT=NOT AVAILABLE) /  (CUMULATIVE DOSE TO
     Route: 048
     Dates: start: 20240221, end: 20240430
  183. LETROZOLE [Suspect]
     Active Substance: LETROZOLE
     Indication: Breast cancer
     Dosage: 2.5 MG, QD; 2.5 MG, 1X/DAY
     Route: 065
     Dates: start: 20240221, end: 20240430
  184. PALBOCICLIB [Suspect]
     Active Substance: PALBOCICLIB
     Indication: Breast cancer
     Dosage: 125 MG, CYCLIC (DAILY FROM DAY 1 TO DAY 21 EVERY 28-DAY CYCLE)
     Route: 048
     Dates: start: 20240221, end: 20240423
  185. PALBOCICLIB [Suspect]
     Active Substance: PALBOCICLIB
     Indication: Breast cancer
     Dosage: 125 MG, CYCLIC (DAILY FROM DAY 1 TO DAY 21 EVERY 28-DAY CYCLE)/ (DOSAGE1: UNIT=NOT AVAILABLE DOSAGE2
     Route: 048
     Dates: start: 20240221, end: 20240423
  186. PALBOCICLIB [Suspect]
     Active Substance: PALBOCICLIB
     Indication: Breast cancer female
     Dosage: 125 MG, CYCLIC (DAILY FROM DAY 1 TO DAY 21 EVERY 28-DAY CYCLE)/ADDITIONAL INFORMATION ON DRUG (FREE
     Route: 048
     Dates: start: 20240221, end: 20240423
  187. SECUKINUMAB [Suspect]
     Active Substance: SECUKINUMAB
     Dosage: 90 MILLIGRAM, UNK
     Route: 059
  188. SECUKINUMAB [Suspect]
     Active Substance: SECUKINUMAB
     Dosage: 90 MILLIGRAM, UNK
     Route: 059
  189. SECUKINUMAB [Suspect]
     Active Substance: SECUKINUMAB
     Dosage: 98 MILLIGRAM, UNK
     Route: 059
  190. SECUKINUMAB [Suspect]
     Active Substance: SECUKINUMAB
     Dosage: 98 MILLIGRAM, UNK
     Route: 059
  191. SECUKINUMAB [Suspect]
     Active Substance: SECUKINUMAB
     Dosage: 98 MILLIGRAM, UNK (DOSAGE1: UNIT=NOT AVAILABLE DOSAGE2: UNIT=NOT AVAILABLE)
     Route: 065
  192. SECUKINUMAB [Suspect]
     Active Substance: SECUKINUMAB
     Dosage: 98 MILLIGRAM, UNK (DOSAGE1: UNIT=NOT AVAILABLE DOSAGE2: UNIT=NOT AVAILABLE)
     Route: 065
  193. SECUKINUMAB [Suspect]
     Active Substance: SECUKINUMAB
     Dosage: 98 MILLIGRAM, UNK (DOSAGE2: UNIT=NOT AVAILABLE)
     Route: 065
  194. SECUKINUMAB [Suspect]
     Active Substance: SECUKINUMAB
     Dosage: 98 MILLIGRAM, UNK (DOSAGE2: UNIT=NOT AVAILABLE)
     Route: 065
  195. SECUKINUMAB [Suspect]
     Active Substance: SECUKINUMAB
     Dosage: 98 MILLIGRAM, UNK (DOSAGE2: UNIT=NOT AVAILABLE)
     Route: 065
  196. SECUKINUMAB [Suspect]
     Active Substance: SECUKINUMAB
     Indication: Product used for unknown indication
     Dosage: UNK
     Route: 059
  197. SECUKINUMAB [Suspect]
     Active Substance: SECUKINUMAB
     Dosage: UNK
     Route: 059
  198. SECUKINUMAB [Suspect]
     Active Substance: SECUKINUMAB
     Dosage: UNK
     Route: 059
  199. SECUKINUMAB [Suspect]
     Active Substance: SECUKINUMAB
     Dosage: UNK
     Route: 059
  200. SECUKINUMAB [Suspect]
     Active Substance: SECUKINUMAB
     Dosage: UNK
     Route: 059
  201. SECUKINUMAB [Suspect]
     Active Substance: SECUKINUMAB
     Dosage: UNK
     Route: 059
  202. SECUKINUMAB [Suspect]
     Active Substance: SECUKINUMAB
     Dosage: UNK
     Route: 059
  203. SECUKINUMAB [Suspect]
     Active Substance: SECUKINUMAB
     Dosage: UNK
     Route: 059
  204. SECUKINUMAB [Suspect]
     Active Substance: SECUKINUMAB
     Dosage: UNK
     Route: 059
  205. SECUKINUMAB [Suspect]
     Active Substance: SECUKINUMAB
     Dosage: UNK
     Route: 059
  206. SECUKINUMAB [Suspect]
     Active Substance: SECUKINUMAB
     Dosage: UNK
     Route: 059
  207. SECUKINUMAB [Suspect]
     Active Substance: SECUKINUMAB
     Dosage: UNK
     Route: 059
  208. SECUKINUMAB [Suspect]
     Active Substance: SECUKINUMAB
     Dosage: UNK
     Route: 059
  209. SECUKINUMAB [Suspect]
     Active Substance: SECUKINUMAB
     Dosage: UNK
     Route: 059
  210. SECUKINUMAB [Suspect]
     Active Substance: SECUKINUMAB
     Dosage: UNK
     Route: 059
  211. SECUKINUMAB [Suspect]
     Active Substance: SECUKINUMAB
     Dosage: UNK
     Route: 059
  212. SECUKINUMAB [Suspect]
     Active Substance: SECUKINUMAB
     Dosage: UNK
     Route: 059
  213. SECUKINUMAB [Suspect]
     Active Substance: SECUKINUMAB
     Dosage: UNK
     Route: 059
  214. SECUKINUMAB [Suspect]
     Active Substance: SECUKINUMAB
     Dosage: UNK
     Route: 059
  215. SECUKINUMAB [Suspect]
     Active Substance: SECUKINUMAB
     Dosage: UNK
     Route: 059
  216. SECUKINUMAB [Suspect]
     Active Substance: SECUKINUMAB
     Dosage: UNK
     Route: 059
  217. SECUKINUMAB [Suspect]
     Active Substance: SECUKINUMAB
     Dosage: UNK
     Route: 059
  218. SECUKINUMAB [Suspect]
     Active Substance: SECUKINUMAB
     Dosage: UNK
     Route: 065
  219. SECUKINUMAB [Suspect]
     Active Substance: SECUKINUMAB
     Dosage: UNK
     Route: 065
  220. SECUKINUMAB [Suspect]
     Active Substance: SECUKINUMAB
     Dosage: UNK
     Route: 065
  221. SECUKINUMAB [Suspect]
     Active Substance: SECUKINUMAB
     Dosage: UNK
     Route: 065
  222. SECUKINUMAB [Suspect]
     Active Substance: SECUKINUMAB
     Dosage: UNK
     Route: 065
  223. SECUKINUMAB [Suspect]
     Active Substance: SECUKINUMAB
     Dosage: UNK
     Route: 065
  224. SECUKINUMAB [Suspect]
     Active Substance: SECUKINUMAB
     Dosage: 98 MG (DOSAGE TEXT: 98 MG) (ADDITIONAL INFORMATION: {CNAPPROVALNUMBER_NGX}NOT APPLICABLE{/CNAPPROVAL
     Route: 065
  225. SECUKINUMAB [Suspect]
     Active Substance: SECUKINUMAB
     Dosage: 98 MG (DOSAGE TEXT: 98 MILLIGRAM) (ADDITIONAL INFORMATION: {CNAPPROVALNUMBER_NGX}NOT APPLICABLE{/CNA
     Route: 065
  226. SECUKINUMAB [Suspect]
     Active Substance: SECUKINUMAB
     Dosage: 98 MG (DOSAGE1: UNIT=NOT AVAILABLE) (ADDITIONAL INFORMATION: {CNAPPROVALNUMBER_NGX}NOT APPLICABLE{/C
     Route: 065
  227. SECUKINUMAB [Suspect]
     Active Substance: SECUKINUMAB
     Dosage: 98 MG (DOSAGE2: UNIT=NOT AVAILABLE) (ADDITIONAL INFORMATION: {CNAPPROVALNUMBER_NGX}NOT APPLICABLE{/C
     Route: 065
  228. SECUKINUMAB [Suspect]
     Active Substance: SECUKINUMAB
     Dosage: 98 MG, (98 MILLIGRAM, UNK (DOSAGE1: UNIT=NOT AVAILABLE)
     Route: 065
  229. SECUKINUMAB [Suspect]
     Active Substance: SECUKINUMAB
     Dosage: 98 MG, (98 MILLIGRAM, UNK (DOSAGE2: UNIT=NOT AVAILABLE)
     Route: 065
  230. SECUKINUMAB [Suspect]
     Active Substance: SECUKINUMAB
     Dosage: 98 MG, (98 MILLIGRAM, UNK)
     Route: 059
  231. SECUKINUMAB [Suspect]
     Active Substance: SECUKINUMAB
     Dosage: 98 MG, (98 MILLIGRAM, UNK)
     Route: 065
  232. SECUKINUMAB [Suspect]
     Active Substance: SECUKINUMAB
     Dosage: 98 MG, (98 MILLIGRAM, UNK)
     Route: 065
  233. SECUKINUMAB [Suspect]
     Active Substance: SECUKINUMAB
     Dosage: 98 MG, (98 MILLIGRAM, UNK)
     Route: 065
  234. SECUKINUMAB [Suspect]
     Active Substance: SECUKINUMAB
     Dosage: (DOSAGE TEXT: UNK,(ADDITIONAL INFORMATION ON DRUG (FREE TEXT): ADDITIONAL INFO: ROUTE:UNKNOWN; UNK))
     Route: 065
  235. SECUKINUMAB [Suspect]
     Active Substance: SECUKINUMAB
     Dosage: UNK (ADDITIONAL INFORMATION ON DRUG (FREE TEXT): ADDITIONAL INFO: ROUTE:UNKNOWN; UNK )
     Route: 059
  236. SECUKINUMAB [Suspect]
     Active Substance: SECUKINUMAB
     Dosage: UNK (ADDITIONAL INFORMATION ON DRUG (FREE TEXT): ADDITIONAL INFO: ROUTE:UNKNOWN; UNK ) (ADDITIONAL I
     Route: 065
  237. SECUKINUMAB [Suspect]
     Active Substance: SECUKINUMAB
     Dosage: UNK (ADDITIONAL INFORMATION: {CNAPPROVALNUMBER_NGX}NOT APPLICABLE{/CNAPPROVALNUMBER_NGX})
     Route: 059
  238. SECUKINUMAB [Suspect]
     Active Substance: SECUKINUMAB
     Dosage: UNK (ADDITIONAL INFORMATION: {CNAPPROVALNUMBER_NGX}NOT APPLICABLE{/CNAPPROVALNUMBER_NGX})
     Route: 065
  239. SECUKINUMAB [Suspect]
     Active Substance: SECUKINUMAB
     Dosage: UNK (ADDITIONAL INFORMATION: {CNAPPROVALNUMBER_NGX}NOT APPLICABLE{/CNAPPROVALNUMBER_NGX})
     Route: 065
  240. SECUKINUMAB [Suspect]
     Active Substance: SECUKINUMAB
     Dosage: UNK (ADDITIONAL INFORMATION: {CNAPPROVALNUMBER_NGX}NOT APPLICABLE{/CNAPPROVALNUMBER_NGX})
     Route: 065
  241. SECUKINUMAB [Suspect]
     Active Substance: SECUKINUMAB
     Dosage: UNK (ADDITIONAL INFORMATION: {CNAPPROVALNUMBER_NGX}NOT APPLICABLE{/CNAPPROVALNUMBER_NGX})
     Route: 065
  242. SECUKINUMAB [Suspect]
     Active Substance: SECUKINUMAB
     Dosage: UNK (ADDITIONAL INFORMATION: {CNAPPROVALNUMBER_NGX}NOT APPLICABLE{/CNAPPROVALNUMBER_NGX})
     Route: 065
  243. SECUKINUMAB [Suspect]
     Active Substance: SECUKINUMAB
     Dosage: UNK (ADDITIONAL INFORMATION: {CNAPPROVALNUMBER_NGX}NOT APPLICABLE{/CNAPPROVALNUMBER_NGX})
     Route: 065
  244. SECUKINUMAB [Suspect]
     Active Substance: SECUKINUMAB
     Dosage: UNK (ADDITIONAL INFORMATION: {CNAPPROVALNUMBER_NGX}NOT APPLICABLE{/CNAPPROVALNUMBER_NGX})/UNK (ADDIT
     Route: 065
  245. SECUKINUMAB [Suspect]
     Active Substance: SECUKINUMAB
     Dosage: UNK (INJECTION)/{CNAPPROVALNUMBER_NGX}NOT APPLICABLE{/CNAPPROVALNUMBER_NGX} DOSAGE1:  UNIT=NOT AVAIL
     Route: 059
  246. SECUKINUMAB [Suspect]
     Active Substance: SECUKINUMAB
     Dosage: 90 MG
     Route: 065
  247. SECUKINUMAB [Suspect]
     Active Substance: SECUKINUMAB
     Dosage: 90 MG
     Route: 065
  248. SECUKINUMAB [Suspect]
     Active Substance: SECUKINUMAB
     Dosage: 98 MG (DOSAGE TEXT: 98 MILLIGRAM)
     Route: 065
  249. SECUKINUMAB [Suspect]
     Active Substance: SECUKINUMAB
     Dosage: UNK
     Route: 059
  250. SECUKINUMAB [Suspect]
     Active Substance: SECUKINUMAB
     Dosage: 90 MG
     Route: 065
  251. SECUKINUMAB [Suspect]
     Active Substance: SECUKINUMAB
     Dosage: 90 MG
     Route: 065
  252. SECUKINUMAB [Suspect]
     Active Substance: SECUKINUMAB
     Dosage: (DOSAGE TEXT: UNK,(ADDITIONAL  INFORMATION ON DRUG (FREE TEXT): ADDITIONAL  INFO: ROUTE:UNKNOWN; UNK
     Route: 065
  253. SECUKINUMAB [Suspect]
     Active Substance: SECUKINUMAB
     Dosage: 98 MG
     Route: 065
  254. SECUKINUMAB [Suspect]
     Active Substance: SECUKINUMAB
     Dosage: 98 MG
     Route: 065
  255. SECUKINUMAB [Suspect]
     Active Substance: SECUKINUMAB
     Dosage: 98 MG (DOSAGE TEXT: 98 MG)
     Route: 065
  256. SECUKINUMAB [Suspect]
     Active Substance: SECUKINUMAB
     Dosage: 98 MG (DOSAGE TEXT: 98 MG)
     Route: 065
  257. SECUKINUMAB [Suspect]
     Active Substance: SECUKINUMAB
     Dosage: 98 MG (DOSAGE TEXT: 98 MILLIGRAM)
     Route: 058
  258. SECUKINUMAB [Suspect]
     Active Substance: SECUKINUMAB
     Dosage: 98 MG (DOSAGE TEXT: 98 MILLIGRAM)
     Route: 065
  259. SECUKINUMAB [Suspect]
     Active Substance: SECUKINUMAB
     Dosage: 98 MILLIGRAM (ADDITIONAL INFO: ROUTE)
     Route: 065
  260. SECUKINUMAB [Suspect]
     Active Substance: SECUKINUMAB
     Dosage: 98 MILLIGRAM (DOSAGE1: UNIT=NOT  AVAILABLE) / DOSAGE1: UNIT=NOT AVAILABLE  DOSAGE2: UNIT=NOT AVAILAB
     Route: 058
  261. SECUKINUMAB [Suspect]
     Active Substance: SECUKINUMAB
     Dosage: 98 MILLIGRAM (DOSAGE2: UNIT=NOT  AVAILABLE)
     Route: 058
  262. SECUKINUMAB [Suspect]
     Active Substance: SECUKINUMAB
     Dosage: ADDITIONAL INFORMATION ON DRUG (FREE TEXT): ADDITIONAL INFO: ROUTE:UNKNOWN; UNK
     Route: 065
  263. SECUKINUMAB [Suspect]
     Active Substance: SECUKINUMAB
     Indication: Product used for unknown indication
     Dosage: UNK
     Route: 058
  264. SECUKINUMAB [Suspect]
     Active Substance: SECUKINUMAB
     Indication: Product used for unknown indication
     Dosage: UNK
     Route: 058
  265. SECUKINUMAB [Suspect]
     Active Substance: SECUKINUMAB
     Dosage: UNK
     Route: 058
  266. SECUKINUMAB [Suspect]
     Active Substance: SECUKINUMAB
     Dosage: UNK
     Route: 058
  267. SECUKINUMAB [Suspect]
     Active Substance: SECUKINUMAB
     Dosage: UNK
     Route: 058
  268. SECUKINUMAB [Suspect]
     Active Substance: SECUKINUMAB
     Dosage: UNK
     Route: 058
  269. SECUKINUMAB [Suspect]
     Active Substance: SECUKINUMAB
     Dosage: UNK
     Route: 058
  270. SECUKINUMAB [Suspect]
     Active Substance: SECUKINUMAB
     Dosage: UNK
     Route: 058
  271. SECUKINUMAB [Suspect]
     Active Substance: SECUKINUMAB
     Dosage: UNK
     Route: 058
  272. SECUKINUMAB [Suspect]
     Active Substance: SECUKINUMAB
     Dosage: UNK
     Route: 058
  273. SECUKINUMAB [Suspect]
     Active Substance: SECUKINUMAB
     Dosage: UNK
     Route: 058
  274. SECUKINUMAB [Suspect]
     Active Substance: SECUKINUMAB
     Dosage: UNK
     Route: 058
  275. SECUKINUMAB [Suspect]
     Active Substance: SECUKINUMAB
     Dosage: UNK
     Route: 058
  276. SECUKINUMAB [Suspect]
     Active Substance: SECUKINUMAB
     Dosage: UNK
     Route: 058
  277. SECUKINUMAB [Suspect]
     Active Substance: SECUKINUMAB
     Dosage: UNK
     Route: 058
  278. SECUKINUMAB [Suspect]
     Active Substance: SECUKINUMAB
     Dosage: UNK
     Route: 058
  279. SECUKINUMAB [Suspect]
     Active Substance: SECUKINUMAB
     Dosage: UNK
     Route: 058
  280. SECUKINUMAB [Suspect]
     Active Substance: SECUKINUMAB
     Dosage: UNK
     Route: 058
  281. SECUKINUMAB [Suspect]
     Active Substance: SECUKINUMAB
     Dosage: UNK
     Route: 058
  282. SECUKINUMAB [Suspect]
     Active Substance: SECUKINUMAB
     Dosage: UNK
     Route: 058
  283. SECUKINUMAB [Suspect]
     Active Substance: SECUKINUMAB
     Dosage: UNK
     Route: 058
  284. SECUKINUMAB [Suspect]
     Active Substance: SECUKINUMAB
     Dosage: UNK
     Route: 065
  285. SECUKINUMAB [Suspect]
     Active Substance: SECUKINUMAB
     Dosage: UNK
     Route: 065
  286. SECUKINUMAB [Suspect]
     Active Substance: SECUKINUMAB
     Dosage: UNK
     Route: 065
  287. SECUKINUMAB [Suspect]
     Active Substance: SECUKINUMAB
     Dosage: UNK
     Route: 065
  288. SECUKINUMAB [Suspect]
     Active Substance: SECUKINUMAB
     Dosage: UNK
     Route: 065
  289. SECUKINUMAB [Suspect]
     Active Substance: SECUKINUMAB
     Dosage: UNK
     Route: 065
  290. SECUKINUMAB [Suspect]
     Active Substance: SECUKINUMAB
     Dosage: UNK
     Route: 065
  291. SECUKINUMAB [Suspect]
     Active Substance: SECUKINUMAB
     Dosage: UNK
     Route: 065
  292. SECUKINUMAB [Suspect]
     Active Substance: SECUKINUMAB
     Dosage: UNK
     Route: 065
  293. SECUKINUMAB [Suspect]
     Active Substance: SECUKINUMAB
     Dosage: UNK
     Route: 065
  294. SECUKINUMAB [Suspect]
     Active Substance: SECUKINUMAB
     Dosage: UNK
     Route: 065
  295. SECUKINUMAB [Suspect]
     Active Substance: SECUKINUMAB
     Dosage: UNK, ADDITIONAL INFORMATION ON DRUG  (FREE TEXT): ADDITIONAL INFO: ROUTE: UNKNOWN; UN
     Route: 058
  296. EDOXABAN TOSYLATE [Concomitant]
     Active Substance: EDOXABAN TOSYLATE
     Indication: Product used for unknown indication
     Dosage: UNK
     Route: 048
     Dates: start: 202401
  297. EDOXABAN TOSYLATE [Concomitant]
     Active Substance: EDOXABAN TOSYLATE
     Dosage: UNK
     Route: 048
     Dates: start: 202401, end: 202401
  298. EDOXABAN TOSYLATE [Concomitant]
     Active Substance: EDOXABAN TOSYLATE
     Indication: Product used for unknown indication
     Dosage: UNK
     Route: 065
     Dates: start: 202401, end: 202401
  299. EDOXABAN TOSYLATE [Concomitant]
     Active Substance: EDOXABAN TOSYLATE
     Dosage: UNK
     Route: 065
     Dates: start: 202401, end: 202401
  300. EDOXABAN TOSYLATE [Concomitant]
     Active Substance: EDOXABAN TOSYLATE
     Dosage: UNK
     Route: 065
     Dates: start: 202401, end: 202401
  301. EDOXABAN TOSYLATE [Concomitant]
     Active Substance: EDOXABAN TOSYLATE
     Dosage: UNK
     Route: 065
     Dates: start: 202401
  302. EDOXABAN TOSYLATE [Concomitant]
     Active Substance: EDOXABAN TOSYLATE
     Dosage: UNK
     Route: 065
     Dates: start: 202401
  303. EDOXABAN TOSYLATE [Concomitant]
     Active Substance: EDOXABAN TOSYLATE
     Dosage: UNK FIRST ADMIN DATE: JAN 2024 LAST ADMIN DATE: JAN 2024
     Route: 065
  304. EDOXABAN TOSYLATE [Concomitant]
     Active Substance: EDOXABAN TOSYLATE
     Dosage: UNKNOWN FIRST ADMIN DATE: JAN 2024
     Route: 065

REACTIONS (5)
  - Anaemia [Recovered/Resolved]
  - Neoplasm progression [Unknown]
  - Metastases to bone [Unknown]
  - Systemic lupus erythematosus [Unknown]
  - White blood cell count decreased [Unknown]

NARRATIVE: CASE EVENT DATE: 20240330
